FAERS Safety Report 12885399 (Version 1)
Quarter: 2016Q4

REPORT INFORMATION
  Report Type: Spontaneous
  Country: US (occurrence: US)
  Receive Date: 20161026
  Receipt Date: 20161026
  Transmission Date: 20170207
  Serious: No
  Sender: FDA-Public Use
  Company Number: US-GLAXOSMITHKLINE-US2016155833

PATIENT
  Age: 64 Year
  Sex: Female

DRUGS (5)
  1. RELPAX [Concomitant]
     Active Substance: ELETRIPTAN HYDROBROMIDE
  2. MONTELUKAST [Concomitant]
     Active Substance: MONTELUKAST SODIUM
  3. DEXILANT [Concomitant]
     Active Substance: DEXLANSOPRAZOLE
  4. FORTEO [Concomitant]
     Active Substance: TERIPARATIDE
  5. IMITREX [Suspect]
     Active Substance: SUMATRIPTAN SUCCINATE
     Indication: MIGRAINE
     Dosage: 6 MG, PRN
     Route: 058
     Dates: start: 1993

REACTIONS (5)
  - Pain in jaw [Unknown]
  - Alanine aminotransferase increased [Recovered/Resolved]
  - Limb discomfort [Unknown]
  - Hepatitis B antibody abnormal [Unknown]
  - Aspartate aminotransferase increased [Recovered/Resolved]

NARRATIVE: CASE EVENT DATE: 2016
